FAERS Safety Report 22525391 (Version 1)
Quarter: 2023Q2

REPORT INFORMATION
  Report Type: Spontaneous
  Country: US (occurrence: US)
  Receive Date: 20230606
  Receipt Date: 20230606
  Transmission Date: 20230721
  Serious: No
  Sender: FDA-Public Use
  Company Number: US-BIOGEN-2020BI00930862

PATIENT
  Sex: Male

DRUGS (1)
  1. TYSABRI [Suspect]
     Active Substance: NATALIZUMAB
     Indication: Multiple sclerosis
     Route: 050
     Dates: start: 20120910

REACTIONS (5)
  - Aphasia [Unknown]
  - Meniscus injury [Unknown]
  - Pain [Unknown]
  - Poor venous access [Unknown]
  - Muscle spasms [Unknown]
